FAERS Safety Report 12164629 (Version 1)
Quarter: 2016Q1

REPORT INFORMATION
  Report Type: Spontaneous
  Country: US (occurrence: US)
  Receive Date: 20160309
  Receipt Date: 20160309
  Transmission Date: 20160526
  Serious: No
  Sender: FDA-Public Use
  Company Number: US-ROCHE-1670474

PATIENT
  Sex: Female

DRUGS (1)
  1. XOLAIR [Suspect]
     Active Substance: OMALIZUMAB
     Indication: PRODUCT USED FOR UNKNOWN INDICATION
     Route: 065

REACTIONS (4)
  - Ocular hyperaemia [Not Recovered/Not Resolved]
  - Dry eye [Not Recovered/Not Resolved]
  - Feeling hot [Not Recovered/Not Resolved]
  - Accidental exposure to product [Unknown]
